FAERS Safety Report 19028103 (Version 2)
Quarter: 2023Q1

REPORT INFORMATION
  Report Type: Spontaneous
  Country: CA (occurrence: CA)
  Receive Date: 20210318
  Receipt Date: 20230124
  Transmission Date: 20230417
  Serious: Yes (Hospitalization, Other)
  Sender: FDA-Public Use
  Company Number: CA-BAUSCH-BL-2021-008316

PATIENT
  Age: 26 Year
  Sex: Female
  Weight: 80 kg

DRUGS (24)
  1. ALBUTEROL SULFATE [Suspect]
     Active Substance: ALBUTEROL SULFATE
     Indication: Product used for unknown indication
     Route: 065
  2. ALBUTEROL [Suspect]
     Active Substance: ALBUTEROL
     Indication: Product used for unknown indication
     Route: 065
  3. ATENOLOL [Suspect]
     Active Substance: ATENOLOL
     Indication: Product used for unknown indication
     Route: 048
  4. BETAMETHASONE VALERATE [Suspect]
     Active Substance: BETAMETHASONE VALERATE
     Indication: Product used for unknown indication
     Route: 061
  5. CITALOPRAM HYDROBROMIDE [Suspect]
     Active Substance: CITALOPRAM HYDROBROMIDE
     Indication: Depression
     Route: 065
  6. DIMENHYDRINATE [Suspect]
     Active Substance: DIMENHYDRINATE
     Indication: Premedication
     Route: 042
  7. DIPHENHYDRAMINE [Suspect]
     Active Substance: DIPHENHYDRAMINE
     Indication: Premedication
     Route: 048
  8. DOXYLAMINE SUCCINATE\PYRIDOXINE HYDROCHLORIDE [Suspect]
     Active Substance: DOXYLAMINE SUCCINATE\PYRIDOXINE HYDROCHLORIDE
     Indication: Nausea
     Route: 065
  9. ESOMEPRAZOLE MAGNESIUM [Suspect]
     Active Substance: ESOMEPRAZOLE MAGNESIUM
     Indication: Product used for unknown indication
     Route: 048
  10. FLOVENT [Suspect]
     Active Substance: FLUTICASONE PROPIONATE
     Indication: Product used for unknown indication
     Route: 048
  11. FLOVENT [Suspect]
     Active Substance: FLUTICASONE PROPIONATE
     Route: 048
  12. IMURAN [Suspect]
     Active Substance: AZATHIOPRINE
     Indication: Product used for unknown indication
     Route: 048
  13. IMURAN [Suspect]
     Active Substance: AZATHIOPRINE
     Route: 048
  14. OMEPRAZOLE [Suspect]
     Active Substance: OMEPRAZOLE
     Indication: Product used for unknown indication
     Route: 048
  15. OXAZEPAM [Suspect]
     Active Substance: OXAZEPAM
     Indication: Product used for unknown indication
     Route: 048
  16. PREDNISONE [Suspect]
     Active Substance: PREDNISONE
     Indication: Haemoglobin decreased
     Route: 048
  17. REMICADE [Suspect]
     Active Substance: INFLIXIMAB
     Indication: Crohn^s disease
     Route: 042
  18. REMICADE [Suspect]
     Active Substance: INFLIXIMAB
     Indication: Chronic disease
     Route: 042
  19. TORADOL [Suspect]
     Active Substance: KETOROLAC TROMETHAMINE
     Indication: Pain
     Route: 065
  20. TYLENOL [Suspect]
     Active Substance: ACETAMINOPHEN
     Indication: Headache
     Route: 048
  21. ZOPICLONE [Suspect]
     Active Substance: ZOPICLONE
     Indication: Product used for unknown indication
     Route: 048
  22. ACETAMINOPHEN [Suspect]
     Active Substance: ACETAMINOPHEN
     Indication: Headache
     Dosage: NOT SPECIFIED
     Route: 048
  23. DICLECTIN [Suspect]
     Active Substance: DOXYLAMINE SUCCINATE\PYRIDOXINE HYDROCHLORIDE
     Indication: Nausea
     Dosage: TABLET (DELAYED- RELEASE)
     Route: 065
  24. DICLECTIN [Suspect]
     Active Substance: DOXYLAMINE SUCCINATE\PYRIDOXINE HYDROCHLORIDE
     Dosage: PROLONGED-RELEASE TABLET
     Route: 065

REACTIONS (9)
  - Abdominal pain [Recovered/Resolved]
  - Concussion [Recovered/Resolved]
  - Dehydration [Recovered/Resolved]
  - Depression [Recovered/Resolved]
  - Diarrhoea [Recovered/Resolved]
  - Haemoglobin decreased [Recovered/Resolved]
  - Rectal haemorrhage [Recovered/Resolved]
  - Nausea [Recovered/Resolved]
  - Exposure during pregnancy [Recovered/Resolved]
